FAERS Safety Report 11294069 (Version 5)
Quarter: 2015Q4

REPORT INFORMATION
  Report Type: Report from Study
  Country: US (occurrence: US)
  Receive Date: 20150722
  Receipt Date: 20151126
  Transmission Date: 20160304
  Serious: Yes (Hospitalization, Other)
  Sender: FDA-Public Use
  Company Number: US-AMGEN-USASL2015067343

PATIENT
  Age: 68 Year
  Sex: Male

DRUGS (5)
  1. KYPROLIS [Suspect]
     Active Substance: CARFILZOMIB
     Dosage: 56 MG/M2, UNK
     Route: 065
     Dates: start: 2015, end: 20151009
  2. METFORMIN [Concomitant]
     Active Substance: METFORMIN HYDROCHLORIDE
     Indication: TYPE 2 DIABETES MELLITUS
     Dosage: UNK
  3. REVLIMID [Suspect]
     Active Substance: LENALIDOMIDE
     Indication: PRODUCT USED FOR UNKNOWN INDICATION
     Dosage: UNK
     Route: 065
     Dates: start: 20150804, end: 20150917
  4. KYPROLIS [Suspect]
     Active Substance: CARFILZOMIB
     Indication: PLASMA CELL MYELOMA
     Dosage: UNK UNK, TWICE A WEEK
     Route: 042
     Dates: start: 201506
  5. INSULIN [Concomitant]
     Active Substance: INSULIN NOS
     Indication: TYPE 2 DIABETES MELLITUS
     Dosage: UNK

REACTIONS (14)
  - Rectal haemorrhage [Not Recovered/Not Resolved]
  - Memory impairment [Not Recovered/Not Resolved]
  - White blood cell count decreased [Unknown]
  - Drug dose omission [Unknown]
  - Red blood cell count decreased [Unknown]
  - Platelet count decreased [Recovered/Resolved]
  - Sepsis [Unknown]
  - Drug ineffective [Unknown]
  - Light chain analysis increased [Not Recovered/Not Resolved]
  - Pneumonia [Unknown]
  - Haemorrhagic disorder [Not Recovered/Not Resolved]
  - Cytopenia [Unknown]
  - Insomnia [Not Recovered/Not Resolved]
  - Cognitive disorder [Not Recovered/Not Resolved]

NARRATIVE: CASE EVENT DATE: 2015
